FAERS Safety Report 22061925 (Version 1)
Quarter: 2023Q1

REPORT INFORMATION
  Report Type: Spontaneous
  Country: ES (occurrence: ES)
  Receive Date: 20230304
  Receipt Date: 20230304
  Transmission Date: 20230418
  Serious: Yes (Hospitalization, Other)
  Sender: FDA-Public Use
  Company Number: ES-AEMPS-1335536

PATIENT
  Age: 78 Year
  Sex: Male

DRUGS (5)
  1. BISOPROLOL [Interacting]
     Active Substance: BISOPROLOL
     Indication: Cardiac failure
     Dosage: 5 MILLIGRAM, ONCE A DAY
     Route: 048
     Dates: start: 20221223
  2. DILTIAZEM HYDROCHLORIDE [Interacting]
     Active Substance: DILTIAZEM HYDROCHLORIDE
     Indication: Cardiac failure
     Dosage: 120 MILLIGRAM, ONCE A DAY
     Route: 048
     Dates: start: 20221201, end: 20230117
  3. OBINUTUZUMAB [Interacting]
     Active Substance: OBINUTUZUMAB
     Indication: Lymphocytic lymphoma
     Dosage: 40 MILLILITER
     Route: 042
     Dates: start: 20221228, end: 20230104
  4. METHYLPREDNISOLONE [Interacting]
     Active Substance: METHYLPREDNISOLONE
     Indication: Hypercalcaemia
     Dosage: 40 MILLIGRAM, ONCE A DAY
     Route: 048
     Dates: start: 20221221, end: 20221227
  5. VENETOCLAX [Interacting]
     Active Substance: VENETOCLAX
     Indication: Lymphocytic lymphoma
     Dosage: 20 MILLIGRAM, ONCE A DAY
     Route: 048
     Dates: start: 20230118

REACTIONS (1)
  - Cardiac failure [Recovered/Resolved]

NARRATIVE: CASE EVENT DATE: 20230118
